FAERS Safety Report 13962047 (Version 1)
Quarter: 2017Q3

REPORT INFORMATION
  Report Type: Spontaneous
  Country: US (occurrence: US)
  Receive Date: 20170912
  Receipt Date: 20170912
  Transmission Date: 20171128
  Serious: No
  Sender: FDA-Public Use
  Company Number: US-ACTELION-A-NJ2017-159294

PATIENT
  Age: 76 Year
  Sex: Female

DRUGS (7)
  1. ZOCOR [Concomitant]
     Active Substance: SIMVASTATIN
  2. SYNTHROID [Concomitant]
     Active Substance: LEVOTHYROXINE SODIUM
  3. COREG [Concomitant]
     Active Substance: CARVEDILOL
  4. VALCHLOR [Suspect]
     Active Substance: MECHLORETHAMINE
     Indication: MYCOSIS FUNGOIDES
     Dosage: UNK
     Route: 061
     Dates: start: 20170315
  5. FLUOROURACIL. [Concomitant]
     Active Substance: FLUOROURACIL
  6. HYDROCHLOROTHIAZIDE AND LISINOPRIL [Concomitant]
     Active Substance: HYDROCHLOROTHIAZIDE\LISINOPRIL
  7. HYDRALAZINE HCL [Concomitant]
     Active Substance: HYDRALAZINE HYDROCHLORIDE

REACTIONS (1)
  - Skin discolouration [Unknown]
